FAERS Safety Report 5280661-8 (Version None)
Quarter: 2007Q1

REPORT INFORMATION
  Report Type: 
  Country: None (occurrence: None)
  Receive Date: 20070329
  Receipt Date: 20070320
  Transmission Date: 20070707
  Serious: Yes (Death, Hospitalization, Other)
  Sender: FDA-Public Use
  Company Number: US-PFIZER INC-2006130370

PATIENT
  Sex: Male
  Weight: 90.7 kg

DRUGS (2)
  1. BEXTRA [Suspect]
     Indication: PAIN
     Route: 048
     Dates: start: 20040201, end: 20041001
  2. BEXTRA [Suspect]
     Indication: INFLAMMATION

REACTIONS (2)
  - CARDIAC DISORDER [None]
  - PNEUMONIA [None]
